FAERS Safety Report 8511716-X (Version None)
Quarter: 2012Q3

REPORT INFORMATION
  Report Type: 
  Country: None (occurrence: None)
  Receive Date: 20120716
  Receipt Date: 20120703
  Transmission Date: 20120928
  Serious: Yes (Death, Other)
  Sender: FDA-Public Use
  Company Number: NL-CELGENEUS-114-20785-05070238

PATIENT

DRUGS (12)
  1. THALOMID [Suspect]
     Indication: MULTIPLE MYELOMA
     Dosage: INDUCTION THERAPY, 200 MG ESCALATED TO 400 MG, QD, WITH VTE PROPHYLAXIS
     Route: 048
  2. NEUPOGEN [Concomitant]
     Dosage: 5 MICROGRAM/KILOGRAM
     Route: 065
  3. MYCOPHENOLATE MOPHETIL [Concomitant]
     Indication: PROPHYLAXIS AGAINST GRAFT VERSUS HOST DISEASE
     Dosage: 30 MILLIGRAM/KILOGRAM
     Route: 065
  4. MELPHALAN HYDROCHLORIDE [Suspect]
     Dosage: 200 MILLIGRAM/SQ. METER
     Route: 065
  5. CYCLOPHOSPHAMIDE [Suspect]
     Indication: MULTIPLE MYELOMA
     Dosage: 1000 MILLIGRAM/SQ. METER
     Route: 041
  6. DEXAMETHASONE [Suspect]
     Dosage: 40 MILLIGRAM
     Route: 048
  7. ADRIAMYCIN PFS [Suspect]
     Dosage: 15 MILLIGRAM/SQ. METER
     Route: 041
  8. CYCLOSPORINE [Concomitant]
     Indication: PROPHYLAXIS AGAINST GRAFT VERSUS HOST DISEASE
     Dosage: 13 MILLIGRAM/KILOGRAM
     Route: 065
  9. THALOMID [Suspect]
     Dosage: MAINTENANCE THERAPY, 50 MG QD, WITHOUT VTE PROPHYLAXIS
     Route: 048
  10. ADRIAMYCIN PFS [Suspect]
     Indication: MULTIPLE MYELOMA
     Dosage: 9 MILLIGRAM/SQ. METER
     Route: 041
  11. DEXAMETHASONE [Suspect]
     Indication: MULTIPLE MYELOMA
     Dosage: 40 MILLIGRAM
     Route: 048
  12. NADROPARINE [Concomitant]
     Indication: PROPHYLAXIS
     Dosage: 2850 IE ANTI-XA OR 5700 ANTI-XA
     Route: 065

REACTIONS (8)
  - POLYNEUROPATHY [None]
  - PULMONARY EMBOLISM [None]
  - DISEASE PROGRESSION [None]
  - TOXICITY TO VARIOUS AGENTS [None]
  - EMBOLISM VENOUS [None]
  - DEEP VEIN THROMBOSIS [None]
  - DEATH [None]
  - GRAFT VERSUS HOST DISEASE [None]
